FAERS Safety Report 17189597 (Version 1)
Quarter: 2019Q4

REPORT INFORMATION
  Report Type: Report from Study
  Country: None (occurrence: US)
  Receive Date: 20191223
  Receipt Date: 20191223
  Transmission Date: 20200122
  Serious: Yes (Other)
  Sender: FDA-Public Use
  Company Number: US-ABBVIE-19K-163-2994306-00

PATIENT
  Age: 44 Year
  Sex: Male

DRUGS (1)
  1. HUMIRA [Suspect]
     Active Substance: ADALIMUMAB
     Indication: HIDRADENITIS
     Route: 058

REACTIONS (5)
  - Device issue [Recovered/Resolved]
  - Device issue [Recovered/Resolved]
  - Attention deficit/hyperactivity disorder [Unknown]
  - Device issue [Recovered/Resolved]
  - Plantar fasciitis [Unknown]

NARRATIVE: CASE EVENT DATE: 20191212
